FAERS Safety Report 18811957 (Version 1)
Quarter: 2021Q1

REPORT INFORMATION
  Report Type: Other
  Country: SG (occurrence: SG)
  Receive Date: 20210129
  Receipt Date: 20210129
  Transmission Date: 20210419
  Serious: Yes (Hospitalization, Other)
  Sender: FDA-Public Use
  Company Number: SG-INVATECH-000040

PATIENT
  Age: 59 Year
  Sex: Female

DRUGS (1)
  1. SODIUM POLYSTYRENE SULFONATE. [Suspect]
     Active Substance: SODIUM POLYSTYRENE SULFONATE
     Indication: PRODUCT USED FOR UNKNOWN INDICATION
     Dosage: TWO 3?DAY ORAL COURSES OF SPS AT 12 AND 1 YEARS PRIOR TO THE CURRENT PRESENTATION.
     Route: 048

REACTIONS (1)
  - Inflammatory pseudotumour [Not Recovered/Not Resolved]
